FAERS Safety Report 6551468-6 (Version None)
Quarter: 2010Q1

REPORT INFORMATION
  Report Type: 
  Country: None (occurrence: None)
  Receive Date: 20100122
  Receipt Date: 20091027
  Transmission Date: 20100710
  Serious: No
  Sender: FDA-Public Use
  Company Number: 2009-00692

PATIENT
  Age: 26 Year
  Sex: Female
  Weight: 56.6996 kg

DRUGS (1)
  1. COLD REMEDY RAPIDMELTS WITH VITAMIN C [Suspect]
     Dosage: QID A FEW WEEKS AGO

REACTIONS (1)
  - AGEUSIA [None]
